FAERS Safety Report 17782846 (Version 1)
Quarter: 2020Q2

REPORT INFORMATION
  Report Type: Spontaneous
  Country: NO (occurrence: NO)
  Receive Date: 20200513
  Receipt Date: 20200513
  Transmission Date: 20200714
  Serious: Yes (Death)
  Sender: FDA-Public Use
  Company Number: NO-FERRINGPH-2020FE02970

PATIENT
  Age: 77 Year
  Sex: Female

DRUGS (21)
  1. NORSPAN [Concomitant]
     Active Substance: BUPRENORPHINE
     Indication: PAIN
     Dosage: 1 PATCH TO BE CHANGED EVERY WEEK
  2. DERMOVAT [CLOBETASOL PROPIONATE] [Concomitant]
     Indication: PSORIASIS
     Dosage: AS NECESSARY
  3. ANORO ELLIPTA [Concomitant]
     Active Substance: UMECLIDINIUM BROMIDE\VILANTEROL TRIFENATATE
     Indication: CHRONIC OBSTRUCTIVE PULMONARY DISEASE
     Dosage: 1 DOSE (1DL) IN THE MORNING
  4. PARACETAMOL [Concomitant]
     Active Substance: ACETAMINOPHEN
     Indication: PAIN
     Dosage: 2 TABLETS 3 TIMES A DAY
  5. TOILAX [Suspect]
     Active Substance: BISACODYL
     Indication: CONSTIPATION
     Dosage: 23/02/2020 THE PATIENT WAS ADMINISTRED 2 TABLETS TOILAX
     Route: 048
     Dates: start: 20200223, end: 20200224
  6. NITROGLYCERIN. [Concomitant]
     Active Substance: NITROGLYCERIN
     Indication: ANGINA PECTORIS
     Dosage: AS NECESSARY
  7. NEOTIGASON [Concomitant]
     Active Substance: ACITRETIN
     Dosage: 1 CAPSULE A DAY
  8. VIMOVO [Concomitant]
     Active Substance: ESOMEPRAZOLE MAGNESIUM\NAPROXEN
     Indication: PAIN
     Dosage: AS NECESSARY
  9. LIPITOR [Concomitant]
     Active Substance: ATORVASTATIN CALCIUM
     Indication: PROPHYLAXIS
     Dosage: 1 TABLET A DAY
  10. VENTOLINE [SALBUTAMOL] [Concomitant]
     Active Substance: ALBUTEROL SULFATE
     Indication: CHRONIC OBSTRUCTIVE PULMONARY DISEASE
     Dosage: AS NECESSARY
  11. ALBYL-E [Concomitant]
     Active Substance: ASPIRIN\MAGNESIUM OXIDE
     Indication: THROMBOSIS PROPHYLAXIS
     Dosage: 1 TABLET DAILY
  12. DAIVOBET [BETAMETHASONE;CALCIPOTRIOL] [Concomitant]
     Indication: PSORIASIS
     Dosage: AS NECESSARY
  13. HIPREX [METHENAMINE HIPPURATE] [Concomitant]
     Indication: URINARY TRACT INFECTION
     Dosage: 1 TABLET A DAY
  14. DULCOLAX (BISACODYL) [Concomitant]
     Active Substance: BISACODYL
     Indication: CONSTIPATION
     Dosage: 1 SUPPOSITORY 3 TIMES PER WEEK
  15. IMOVANE [Concomitant]
     Active Substance: ZOPICLONE
     Indication: INITIAL INSOMNIA
     Dosage: 1  TABLET AT BEDTIME
  16. IMDUR [Concomitant]
     Active Substance: ISOSORBIDE MONONITRATE
     Indication: ANGINA PECTORIS
     Dosage: 1 TABLET DAILY
  17. SOMAC [Concomitant]
     Active Substance: PANTOPRAZOLE SODIUM
     Indication: GASTROOESOPHAGEAL REFLUX DISEASE
     Dosage: 40 MG *1
     Route: 048
  18. MOVICOL READY TO TAKE [Concomitant]
     Indication: CONSTIPATION
     Dosage: 0,5-1 DOSE 1-2 TIMES A DAY
  19. METOPROLOL SANDOZ [METOPROLOL SUCCINATE] [Concomitant]
     Indication: HYPERTONIA
     Dosage: 1 TABLET DAILY
  20. PICOPREP [Suspect]
     Active Substance: ANHYDROUS CITRIC ACID\MAGNESIUM OXIDE\SODIUM PICOSULFATE
     Indication: BOWEL PREPARATION
     Dosage: 1 DOSE 24/2
     Route: 048
     Dates: start: 20200224, end: 20200224
  21. TRIATEC COMP [Concomitant]
     Active Substance: HYDROCHLOROTHIAZIDE\RAMIPRIL
     Indication: HYPERTONIA
     Dosage: 1 TABLETS A DAY

REACTIONS (4)
  - Hypovolaemia [Fatal]
  - Intestinal ischaemia [Fatal]
  - Off label use [Unknown]
  - Blood pressure decreased [Fatal]

NARRATIVE: CASE EVENT DATE: 20200224
